FAERS Safety Report 4292237-X (Version None)
Quarter: 2004Q1

REPORT INFORMATION
  Report Type: 
  Country: None (occurrence: None)
  Receive Date: 20040211
  Receipt Date: 20031208
  Transmission Date: 20041129
  Serious: Yes (Life-Threatening, Hospitalization, Disabling, Other)
  Sender: FDA-Public Use
  Company Number: US-GLAXOSMITHKLINE-A0442315A

PATIENT
  Age: 4 Year
  Sex: Female

DRUGS (4)
  1. LAMICTAL [Suspect]
     Indication: BIPOLAR DISORDER
     Dosage: 12.5MG TWICE PER DAY
     Route: 048
     Dates: start: 20031101
  2. CONCERTA [Concomitant]
  3. VALPROIC ACID [Concomitant]
  4. AMOXICILLIN [Concomitant]

REACTIONS (9)
  - BLISTER [None]
  - DERMATITIS EXFOLIATIVE [None]
  - EAR INFECTION [None]
  - PYREXIA [None]
  - RASH [None]
  - RESPIRATORY DISORDER [None]
  - STEVENS-JOHNSON SYNDROME [None]
  - SWELLING FACE [None]
  - UPPER RESPIRATORY TRACT INFECTION [None]
